FAERS Safety Report 15842939 (Version 1)
Quarter: 2019Q1

REPORT INFORMATION
  Report Type: Spontaneous
  Country: US (occurrence: US)
  Receive Date: 20190118
  Receipt Date: 20190118
  Transmission Date: 20190417
  Serious: Yes (Disabling)
  Sender: FDA-Public Use
  Company Number: None

PATIENT
  Age: 45 Year
  Sex: Male
  Weight: 135 kg

DRUGS (6)
  1. METFORMIN [Concomitant]
     Active Substance: METFORMIN HYDROCHLORIDE
  2. HUMALOG VIA INSULIN PUMP [Concomitant]
  3. LYRICA [Concomitant]
     Active Substance: PREGABALIN
  4. LISINOPRIL. [Concomitant]
     Active Substance: LISINOPRIL
  5. ATENOLOL. [Concomitant]
     Active Substance: ATENOLOL
  6. JARDIANCE [Suspect]
     Active Substance: EMPAGLIFLOZIN
     Indication: DIABETES MELLITUS
     Dosage: ?          QUANTITY:30 CAPSULE(S);?
     Route: 048
     Dates: start: 20180710, end: 20180731

REACTIONS (2)
  - Pollakiuria [None]
  - Urinary incontinence [None]

NARRATIVE: CASE EVENT DATE: 20180710
